FAERS Safety Report 6023787-3 (Version None)
Quarter: 2008Q4

REPORT INFORMATION
  Report Type: 
  Country: None (occurrence: None)
  Receive Date: 20081230
  Receipt Date: 20081219
  Transmission Date: 20090506
  Serious: Yes (Death, Hospitalization)
  Sender: FDA-Public Use
  Company Number: US-AMGEN-KDL325341

PATIENT

DRUGS (1)
  1. ENBREL [Suspect]
     Route: 064
     Dates: start: 20030101

REACTIONS (1)
  - INTRA-UTERINE DEATH [None]
